FAERS Safety Report 10180560 (Version 6)
Quarter: 2014Q4

REPORT INFORMATION
  Report Type: Report from Study
  Country: DE (occurrence: DE)
  Receive Date: 20140519
  Receipt Date: 20141105
  Transmission Date: 20150528
  Serious: Yes (Death, Hospitalization, Other)
  Sender: FDA-Public Use
  Company Number: DE-GILEAD-2014-0102710

PATIENT
  Age: 67 Year
  Sex: Female

DRUGS (62)
  1. SANDIMMUN OPTORAL [Concomitant]
     Active Substance: CYCLOSPORINE
     Dosage: 71 MG, UNK
     Dates: end: 20140313
  2. SANDIMMUN OPTORAL [Concomitant]
     Active Substance: CYCLOSPORINE
     Dosage: 60 MG, UNK
  3. NOVALGIN [Concomitant]
     Active Substance: METAMIZOLE SODIUM
     Dosage: UNK, PRN
  4. TORASEMID [Concomitant]
     Active Substance: TORSEMIDE
     Indication: FLUID RETENTION
     Dosage: 5 MG, QD
  5. PARACETAMOL [Concomitant]
     Active Substance: ACETAMINOPHEN
     Route: 042
  6. NOVAMINSULFON [Concomitant]
     Active Substance: METAMIZOLE
     Route: 042
  7. MORPHIN                            /00036302/ [Concomitant]
     Route: 042
  8. URSOFALK [Concomitant]
     Active Substance: URSODIOL
     Dosage: 10 ML, UNK
  9. CLINOLEIC [Concomitant]
     Dosage: 250 ML, UNK
     Route: 042
  10. SOFOSBUVIR [Suspect]
     Active Substance: SOFOSBUVIR
     Indication: HEPATITIS C
     Dosage: 400 MG, QD
     Route: 065
     Dates: start: 20140206, end: 20140528
  11. SANDIMMUN OPTORAL [Concomitant]
     Active Substance: CYCLOSPORINE
     Dosage: 60 MG, UNK
     Dates: start: 20140313
  12. DECORTIN H [Concomitant]
     Active Substance: PREDNISOLONE
     Dosage: 5 MG, QD
  13. AMLODIPIN                          /00972401/ [Concomitant]
     Active Substance: AMLODIPINE BESYLATE
     Dosage: 2.5 MG, QD
  14. CONCOR [Concomitant]
     Active Substance: BISOPROLOL FUMARATE
     Dosage: 5 MG, QD
  15. MAGNESIUM VERLA                    /01486820/ [Concomitant]
     Dosage: 40 MG, BID
  16. DEKRISTOL [Concomitant]
     Active Substance: CHOLECALCIFEROL
     Indication: VITAMIN D DEFICIENCY
     Dosage: 1 DF, Q1WK
  17. NUTRISON [Concomitant]
     Dosage: UNK, QD
  18. DELIX                              /00885601/ [Concomitant]
     Dosage: 10 MG, QD
     Route: 048
  19. PROPOFOL. [Concomitant]
     Active Substance: PROPOFOL
     Dosage: 130 MG, UNK
     Route: 042
  20. PROPOFOL. [Concomitant]
     Active Substance: PROPOFOL
     Dosage: 50 MG, UNK
     Route: 042
  21. FIBRINOGEN HUMAN [Concomitant]
     Active Substance: FIBRINOGEN HUMAN
     Dosage: 1 G, UNK
  22. NOREPINEPHRINE [Concomitant]
     Active Substance: NOREPINEPHRINE\NOREPINEPHRINE BITARTRATE
     Route: 042
  23. DOLANTIN [Concomitant]
     Active Substance: MEPERIDINE
     Dosage: 25 MG, UNK
     Route: 042
  24. SAROTEN [Concomitant]
     Active Substance: AMITRIPTYLINE
     Dosage: 50 MG, QD
  25. DIPIDOLOR [Concomitant]
     Active Substance: PIRITRAMIDE
     Dosage: 3.75 MG, UNK
     Route: 042
  26. STEROFUNDIN [Concomitant]
     Dosage: 500 ML, UNK
     Route: 042
  27. METOPROLOL [Concomitant]
     Active Substance: METOPROLOL
     Dosage: 50 MG, UNK
  28. NEXIUM [Concomitant]
     Active Substance: ESOMEPRAZOLE MAGNESIUM
     Dosage: 40 MG, QD
  29. POTASSIUM CHLORIDE. [Concomitant]
     Active Substance: POTASSIUM CHLORIDE
     Route: 042
  30. AMINOPLASMAL                       /07410301/ [Concomitant]
     Dosage: 500 ML, UNK
     Route: 042
  31. HUMAN ALBUMIN [Concomitant]
     Active Substance: ALBUMIN (HUMAN)
     Dosage: 50 ML, UNK
  32. CYKLOKAPRON [Concomitant]
     Active Substance: TRANEXAMIC ACID
  33. EUNERPAN [Concomitant]
     Active Substance: MELPERONE HYDROCHLORIDE
     Dosage: 50 MG, UNK
  34. G40% + ACTRAPID [Concomitant]
     Dosage: 100 ML, UNK
     Route: 042
  35. PANTOZOL [Concomitant]
     Active Substance: PANTOPRAZOLE SODIUM
     Dosage: 40 MG, QD
  36. THIAMIN [Concomitant]
     Active Substance: THIAMINE
     Dosage: 200 MG, QD
  37. ASPIRIN. [Concomitant]
     Active Substance: ASPIRIN
     Dosage: 100 MG, UNK
  38. SODIUM GLYCEROPHOSPHATE [Concomitant]
     Active Substance: SODIUM GLYCEROPHOSPHATE
     Route: 042
  39. CIPROBAY                           /00697201/ [Concomitant]
     Dosage: UNK MG, UNK
     Route: 042
  40. VANCOMYCIN [Concomitant]
     Active Substance: VANCOMYCIN
     Route: 042
  41. G40% + ADDEL N [Concomitant]
     Dosage: 500 ML, UNK
     Route: 042
  42. SIMEPREVIR [Suspect]
     Active Substance: SIMEPREVIR
     Indication: HEPATITIS C
     Dosage: 150 MG, QD
     Route: 048
     Dates: start: 20140228, end: 20140528
  43. UNACID                             /00917901/ [Concomitant]
     Dosage: 375 MG, BID
  44. MEROPENEM EBERTH [Concomitant]
  45. CHLORHEXIDIN                       /00133001/ [Concomitant]
     Dosage: 5 ML, UNK
  46. MST                                /00036302/ [Concomitant]
     Dosage: 20 MG, UNK
  47. MST                                /00036302/ [Concomitant]
     Dosage: 5 UNK, UNK
  48. BIFITERAL [Concomitant]
     Active Substance: LACTULOSE
     Dosage: 10 ML, UNK
  49. CONCOR [Concomitant]
     Active Substance: BISOPROLOL FUMARATE
     Dosage: 7.5 UNK, UNK
     Route: 048
  50. KEPPRA [Concomitant]
     Active Substance: LEVETIRACETAM
     Dosage: 500 MG, QD
  51. FORTIMEL [Concomitant]
     Active Substance: DIETARY SUPPLEMENT
     Dosage: UNK, QD
  52. ERYTHROPOIETIN [Concomitant]
     Active Substance: ERYTHROPOIETIN
     Indication: NEPHROGENIC ANAEMIA
     Dosage: UNK
     Dates: end: 20140228
  53. G40% [Concomitant]
     Dosage: 20 ML, UNK
     Route: 042
  54. COPEGUS [Concomitant]
     Active Substance: RIBAVIRIN
     Indication: HEPATITIS C
     Dosage: 200 MG, BID
     Route: 048
     Dates: start: 20140206
  55. KEPPRA [Concomitant]
     Active Substance: LEVETIRACETAM
     Dosage: 500 MG, BID
  56. CLEXANE [Concomitant]
     Active Substance: ENOXAPARIN SODIUM
     Dosage: 20 MG, UNK
     Route: 058
  57. ACTRAPID [Concomitant]
     Active Substance: INSULIN HUMAN
     Dosage: UNK
     Route: 042
  58. ACTONEL [Concomitant]
     Active Substance: RISEDRONATE SODIUM
     Dosage: 35 MG, Q1WK
  59. VALGANCICLOVIR [Concomitant]
     Active Substance: VALGANCICLOVIR
     Indication: CYTOMEGALOVIRUS INFECTION
  60. ZYVOXID [Concomitant]
     Active Substance: LINEZOLID
     Dosage: 1 DF, UNK
     Route: 042
  61. GENTAMICIN. [Concomitant]
     Active Substance: GENTAMICIN
     Route: 042
  62. RESONIUM A [Concomitant]
     Active Substance: SODIUM POLYSTYRENE SULFONATE
     Dosage: 100 ML, UNK

REACTIONS (13)
  - Pneumonia [Recovered/Resolved]
  - Ascites [Not Recovered/Not Resolved]
  - Pleural effusion [Recovered/Resolved]
  - Renal impairment [Not Recovered/Not Resolved]
  - Sepsis [Fatal]
  - Aortic valve stenosis [Recovered/Resolved]
  - Cystitis [Recovered/Resolved]
  - Off label use [Unknown]
  - Haemothorax [Recovered/Resolved]
  - Pleural infection bacterial [Recovered/Resolved with Sequelae]
  - Anaemia [Unknown]
  - Continuous haemodiafiltration [Not Recovered/Not Resolved]
  - Haemothorax [Recovered/Resolved]

NARRATIVE: CASE EVENT DATE: 20140313
